FAERS Safety Report 8501046-4 (Version None)
Quarter: 2012Q2

REPORT INFORMATION
  Report Type: 
  Country: None (occurrence: None)
  Receive Date: 20120405
  Receipt Date: 20110221
  Transmission Date: 20120825
  Serious: Yes (Other)
  Sender: FDA-Public Use
  Company Number: PHHY2011US14122

PATIENT
  Age: 76 Year
  Sex: Female

DRUGS (9)
  1. VITAMIN B12 [Concomitant]
  2. LEVOTHYROXINE SODIUM [Concomitant]
  3. GINKO (GINKO) [Concomitant]
  4. WARFARIN SODIUM [Concomitant]
  5. RECLAST [Suspect]
     Dosage: 5 MG, 100 ML, INFUSION
     Dates: start: 20100101
  6. RECLAST [Suspect]
     Dosage: 5 MG, 100 ML, INFUSION
     Dates: start: 20090101
  7. ASCORBIC ACID [Concomitant]
  8. VITAMIN D [Concomitant]
  9. ATENOLOL [Concomitant]

REACTIONS (1)
  - HYPOAESTHESIA [None]
